FAERS Safety Report 7710713-1 (Version None)
Quarter: 2011Q3

REPORT INFORMATION
  Report Type: 
  Country: None (occurrence: None)
  Receive Date: 20110825
  Receipt Date: 20110815
  Transmission Date: 20111222
  Serious: Yes (Death)
  Sender: FDA-Public Use
  Company Number: US-BAXTER-2011BH027197

PATIENT

DRUGS (9)
  1. VINCRISTINE [Suspect]
     Indication: BURKITT'S LYMPHOMA
     Route: 065
  2. CYTARABINE [Suspect]
     Indication: BURKITT'S LYMPHOMA
     Route: 037
  3. ANTIFUNGALS [Concomitant]
     Indication: ANTIFUNGAL PROPHYLAXIS
     Route: 065
  4. RITUXIMAB [Suspect]
     Indication: BURKITT'S LYMPHOMA
     Route: 065
  5. RITUXIMAB [Suspect]
     Route: 042
  6. NEUPOGEN [Concomitant]
     Indication: COLONY STIMULATING FACTOR PROPHYLAXIS
     Route: 065
  7. METHOTREXATE [Suspect]
     Indication: BURKITT'S LYMPHOMA
     Route: 042
  8. CYCLOPHOSPHAMIDE [Suspect]
     Indication: BURKITT'S LYMPHOMA
     Route: 065
  9. DOXORUBICIN HCL [Suspect]
     Indication: BURKITT'S LYMPHOMA
     Route: 065

REACTIONS (1)
  - INFECTION [None]
